FAERS Safety Report 9940686 (Version 2)
Quarter: 2014Q1

REPORT INFORMATION
  Report Type: Report from Study
  Country: US (occurrence: US)
  Receive Date: 20140303
  Receipt Date: 20140314
  Transmission Date: 20141002
  Serious: Yes (Hospitalization)
  Sender: FDA-Public Use
  Company Number: US-ACTELION-A-NJ2014-95373

PATIENT
  Age: 55 Year
  Sex: Female

DRUGS (3)
  1. TRACLEER [Suspect]
     Indication: PULMONARY ARTERIAL HYPERTENSION
     Dosage: UNK
     Route: 048
     Dates: start: 20050105
  2. SILDENAFIL [Concomitant]
  3. TYVASO [Concomitant]

REACTIONS (2)
  - Dehydration [Recovering/Resolving]
  - Bronchitis [Recovering/Resolving]
